FAERS Safety Report 4693732-1 (Version None)
Quarter: 2005Q2

REPORT INFORMATION
  Report Type: 
  Country: None (occurrence: None)
  Receive Date: 20050615
  Receipt Date: 20050603
  Transmission Date: 20051028
  Serious: Yes (Hospitalization, Other)
  Sender: FDA-Public Use
  Company Number: HQWYE972510JUL04

PATIENT
  Age: 72 Year
  Sex: Female

DRUGS (2)
  1. PANTOZOL (PANTOPRAZOLE, TABLET, DELAYED RELEASE) [Suspect]
     Indication: GASTROOESOPHAGEAL REFLUX DISEASE
     Dosage: 80 MG SOME TIME (S), ORAL
     Route: 048
     Dates: start: 19920401
  2. PANTOZOL (PANTOPRAZOLE, TABLET, DELAYED RELEASE) [Suspect]
     Indication: OESOPHAGITIS
     Dosage: 80 MG SOME TIME (S), ORAL
     Route: 048
     Dates: start: 19920401

REACTIONS (1)
  - BREAST CANCER [None]
